FAERS Safety Report 8013467-7 (Version None)
Quarter: 2011Q4

REPORT INFORMATION
  Report Type: 
  Country: None (occurrence: None)
  Receive Date: 20111227
  Receipt Date: 20111227
  Transmission Date: 20120403
  Serious: No
  Sender: FDA-Public Use
  Company Number: None

PATIENT
  Age: 75 Year
  Sex: Male
  Weight: 90.5 kg

DRUGS (1)
  1. DABIGATRAN [Suspect]
     Indication: ATRIAL FIBRILLATION
     Dosage: 150 MG BID PO
     Route: 048
     Dates: start: 20110813, end: 20110831

REACTIONS (10)
  - WHEEZING [None]
  - ABDOMINAL PAIN UPPER [None]
  - URTICARIA [None]
  - SALIVARY HYPERSECRETION [None]
  - PRURITUS [None]
  - DIZZINESS [None]
  - VOMITING [None]
  - COUGH [None]
  - NAUSEA [None]
  - DECREASED APPETITE [None]
